FAERS Safety Report 9361008 (Version 1)
Quarter: 2013Q2

REPORT INFORMATION
  Report Type: Spontaneous
  Country: FR (occurrence: FR)
  Receive Date: 20130621
  Receipt Date: 20130621
  Transmission Date: 20140414
  Serious: Yes (Hospitalization)
  Sender: FDA-Public Use
  Company Number: FR-PFIZER INC-2013180276

PATIENT
  Age: 71 Year
  Sex: Male
  Weight: 104 kg

DRUGS (11)
  1. VFEND [Suspect]
     Dosage: 400 MG, 2X/DAY
     Route: 048
     Dates: start: 20130312, end: 20130319
  2. DEPAKOTE [Concomitant]
  3. TIAPRIDAL [Concomitant]
  4. OLANZAPINE [Concomitant]
  5. ANAFRANIL [Concomitant]
     Dosage: 75 MG, 2X/DAY IN THE MORNING
  6. XANAX [Concomitant]
  7. ZOPICLONE [Concomitant]
  8. BISOPROLOL [Concomitant]
  9. PERMIXON [Concomitant]
  10. LEVOTHYROX [Concomitant]
  11. PLAVIX [Concomitant]

REACTIONS (3)
  - Hypercapnic coma [Recovered/Resolved]
  - Hyperkalaemia [Recovered/Resolved]
  - Renal failure acute [Recovered/Resolved]
